FAERS Safety Report 7438053-9 (Version None)
Quarter: 2011Q2

REPORT INFORMATION
  Report Type: 
  Country: None (occurrence: None)
  Receive Date: 20110426
  Receipt Date: 20110419
  Transmission Date: 20111010
  Serious: Yes (Death, Other)
  Sender: FDA-Public Use
  Company Number: PHHY2011CH33989

PATIENT
  Age: 18 Year
  Sex: Female
  Weight: 50 kg

DRUGS (3)
  1. TEMESTA [Concomitant]
     Indication: ENCEPHALITIS
     Dosage: 16 MG, DAILY
  2. BENZODIAZEPINES [Concomitant]
     Dosage: 5 TO 10 MG DAILY DOSE
  3. LEPONEX [Suspect]
     Dosage: 6.25 MG, DAILY
     Route: 042

REACTIONS (13)
  - APNOEA [None]
  - TACHYCARDIA [None]
  - PYREXIA [None]
  - RESPIRATORY DISORDER [None]
  - RESPIRATORY RATE INCREASED [None]
  - DYSPHAGIA [None]
  - MUSCLE SPASTICITY [None]
  - EOSINOPHILIC MYOCARDITIS [None]
  - CARDIO-RESPIRATORY ARREST [None]
  - MUSCULOSKELETAL STIFFNESS [None]
  - LIMB DEFORMITY [None]
  - DYSPNOEA [None]
  - DEPRESSED LEVEL OF CONSCIOUSNESS [None]
